FAERS Safety Report 6907164-6 (Version None)
Quarter: 2010Q3

REPORT INFORMATION
  Report Type: 
  Country: None (occurrence: None)
  Receive Date: 20100804
  Receipt Date: 20090815
  Transmission Date: 20110219
  Serious: No
  Sender: FDA-Public Use
  Company Number: US-PFIZER INC-2009233060

PATIENT
  Sex: Male
  Weight: 74 kg

DRUGS (7)
  1. SELZENTRY [Suspect]
     Dosage: 300 MG, 2X/DAY
     Route: 048
     Dates: start: 20080808
  2. EPIVIR [Concomitant]
     Dosage: UNK
  3. ZIAGEN [Concomitant]
     Dosage: UNK
  4. SUSTIVA [Concomitant]
     Dosage: UNK
  5. HYDROXYUREA [Concomitant]
     Dosage: UNK
  6. NAMENDA [Concomitant]
     Dosage: UNK
  7. ARICEPT [Concomitant]
     Dosage: UNK

REACTIONS (2)
  - INTENTIONAL DRUG MISUSE [None]
  - LOGORRHOEA [None]
